FAERS Safety Report 13589766 (Version 1)
Quarter: 2017Q2

REPORT INFORMATION
  Report Type: Report from Study
  Country: US (occurrence: US)
  Receive Date: 20170529
  Receipt Date: 20170529
  Transmission Date: 20170830
  Serious: Yes (Hospitalization)
  Sender: FDA-Public Use
  Company Number: US-GILEAD-2017-0274501

PATIENT
  Age: 78 Year
  Sex: Female

DRUGS (16)
  1. MUCINEX [Concomitant]
     Active Substance: GUAIFENESIN
  2. LUMIGAN [Concomitant]
     Active Substance: BIMATOPROST
  3. DIOVAN [Concomitant]
     Active Substance: VALSARTAN
  4. ADVAIR HFA [Concomitant]
     Active Substance: FLUTICASONE PROPIONATE\SALMETEROL XINAFOATE
  5. FLUCONAZOLE. [Concomitant]
     Active Substance: FLUCONAZOLE
  6. ELIQUIS [Concomitant]
     Active Substance: APIXABAN
  7. LIPITOR [Concomitant]
     Active Substance: ATORVASTATIN CALCIUM
  8. BUMETANIDE. [Concomitant]
     Active Substance: BUMETANIDE
  9. ALDACTONE [Concomitant]
     Active Substance: SPIRONOLACTONE
  10. DILTIAZEM. [Concomitant]
     Active Substance: DILTIAZEM
  11. CLOTRIMAZOLE. [Concomitant]
     Active Substance: CLOTRIMAZOLE
  12. ALLOPURINOL. [Concomitant]
     Active Substance: ALLOPURINOL
  13. METFORMIN [Concomitant]
     Active Substance: METFORMIN HYDROCHLORIDE
  14. AMBRISENTAN [Suspect]
     Active Substance: AMBRISENTAN
     Indication: PULMONARY HYPERTENSION
     Dosage: 10 MG, QD
     Route: 065
     Dates: start: 20120912
  15. METOLAZONE. [Concomitant]
     Active Substance: METOLAZONE
  16. SYNTHROID [Concomitant]
     Active Substance: LEVOTHYROXINE SODIUM

REACTIONS (1)
  - Rubella [Recovered/Resolved]

NARRATIVE: CASE EVENT DATE: 20170414
